FAERS Safety Report 6457476-8 (Version None)
Quarter: 2009Q4

REPORT INFORMATION
  Report Type: 
  Country: None (occurrence: None)
  Receive Date: 20091120
  Receipt Date: 20091113
  Transmission Date: 20100525
  Serious: Yes (Other)
  Sender: FDA-Public Use
  Company Number: 2009SP033865

PATIENT
  Age: 24 Year
  Sex: Female
  Weight: 62 kg

DRUGS (2)
  1. NUVARING [Suspect]
     Indication: CONTRACEPTION
     Dates: start: 20080701, end: 20090701
  2. NUVARING [Suspect]
     Indication: CONTRACEPTION
     Dates: start: 20091001

REACTIONS (3)
  - OEDEMA PERIPHERAL [None]
  - PNEUMONIA [None]
  - WEIGHT INCREASED [None]
